FAERS Safety Report 15178011 (Version 1)
Quarter: 2018Q3

REPORT INFORMATION
  Report Type: Spontaneous
  Country: ES (occurrence: ES)
  Receive Date: 20180721
  Receipt Date: 20180721
  Transmission Date: 20181010
  Serious: Yes (Hospitalization, Other)
  Sender: FDA-Public Use
  Company Number: ES-AUROBINDO-AUR-APL-2018-036292

PATIENT
  Age: 73 Year
  Sex: Female

DRUGS (1)
  1. CAPECITABINE. [Suspect]
     Active Substance: CAPECITABINE
     Indication: RECTAL ADENOCARCINOMA
     Dosage: 1500 MILLIGRAM, TWO TIMES A DAY
     Route: 048
     Dates: start: 201507, end: 201610

REACTIONS (3)
  - Depressed level of consciousness [Recovered/Resolved]
  - Hypertension [Recovered/Resolved]
  - Parkinson^s disease [Recovered/Resolved]

NARRATIVE: CASE EVENT DATE: 20160909
